FAERS Safety Report 19390325 (Version 1)
Quarter: 2021Q2

REPORT INFORMATION
  Report Type: Spontaneous
  Country: US (occurrence: US)
  Receive Date: 20210608
  Receipt Date: 20210608
  Transmission Date: 20210717
  Serious: No
  Sender: FDA-Public Use
  Company Number: NVSC2021US121737

PATIENT
  Sex: Male

DRUGS (1)
  1. COSENTYX [Suspect]
     Active Substance: SECUKINUMAB
     Indication: PRODUCT USED FOR UNKNOWN INDICATION
     Dosage: 300 MG, QMO (2*150 MG)
     Route: 065

REACTIONS (5)
  - Asthenia [Unknown]
  - Incorrect dose administered [Unknown]
  - Lethargy [Unknown]
  - Pyrexia [Unknown]
  - Product dose omission issue [Unknown]
